FAERS Safety Report 23122988 (Version 1)
Quarter: 2023Q4

REPORT INFORMATION
  Report Type: Spontaneous
  Country: CN (occurrence: CN)
  Receive Date: 20231030
  Receipt Date: 20231030
  Transmission Date: 20240109
  Serious: Yes (Death, Hospitalization, Other)
  Sender: FDA-Public Use
  Company Number: CN-AMGEN-CHNSP2023191523

PATIENT

DRUGS (1)
  1. EVOLOCUMAB [Suspect]
     Active Substance: EVOLOCUMAB
     Indication: Acute coronary syndrome
     Dosage: 140 MILLIGRAM, Q2WK
     Route: 058

REACTIONS (11)
  - Cardiac disorder [Fatal]
  - Myocardial infarction [Fatal]
  - Angina unstable [Fatal]
  - Ischaemic stroke [Unknown]
  - Dementia [Unknown]
  - Diabetes mellitus [Unknown]
  - Cataract [Unknown]
  - Thrombosis [Unknown]
  - Muscle disorder [Unknown]
  - Adverse event [Unknown]
  - Coronary artery disease [Unknown]
